FAERS Safety Report 24674162 (Version 2)
Quarter: 2024Q4

REPORT INFORMATION
  Report Type: Report from Study
  Country: NL (occurrence: NL)
  Receive Date: 20241128
  Receipt Date: 20241216
  Transmission Date: 20250115
  Serious: Yes (Other)
  Sender: RECORDATI
  Company Number: NL-ORPHANEU-2024009156

PATIENT

DRUGS (2)
  1. SIGNIFOR LAR [Suspect]
     Active Substance: PASIREOTIDE PAMOATE
     Indication: Acromegaly
     Dosage: 60 MG SOLVENS 2 ML, Q28D (1 X EVERY 4 WEEKS)
     Route: 030
     Dates: start: 20151013
  2. SIGNIFOR LAR [Suspect]
     Active Substance: PASIREOTIDE PAMOATE
     Dosage: SIGNIFOR INJ.PDR. 60MG SOLVENS 2ML (1 X EVERY 3 WEEKS)
     Route: 030
     Dates: start: 201601

REACTIONS (1)
  - Cataract [Recovering/Resolving]
